FAERS Safety Report 14065984 (Version 2)
Quarter: 2017Q4

REPORT INFORMATION
  Report Type: Other
  Country: US (occurrence: US)
  Receive Date: 20171009
  Receipt Date: 20171017
  Transmission Date: 20180321
  Serious: Yes (Hospitalization, Other)
  Sender: FDA-Public Use
  Company Number: US-INTERCEPT-PMOCA2017001024

PATIENT

DRUGS (3)
  1. OCALIVA [Suspect]
     Active Substance: OBETICHOLIC ACID
     Indication: BILIARY CIRRHOSIS PRIMARY
     Dosage: 10 MG, QD
     Dates: start: 201704, end: 20170925
  2. OCALIVA [Suspect]
     Active Substance: OBETICHOLIC ACID
     Dosage: 5 MG, QD
     Route: 048
     Dates: start: 201611, end: 201704
  3. URSODIOL. [Concomitant]
     Active Substance: URSODIOL

REACTIONS (6)
  - Varices oesophageal [Unknown]
  - Melaena [Unknown]
  - Jaundice [Unknown]
  - Hepatic failure [Unknown]
  - Hyperbilirubinaemia [Unknown]
  - Gastrointestinal haemorrhage [Unknown]

NARRATIVE: CASE EVENT DATE: 20170923
